FAERS Safety Report 7000268-1 (Version None)
Quarter: 2010Q3

REPORT INFORMATION
  Report Type: 
  Country: None (occurrence: None)
  Receive Date: 20100920
  Receipt Date: 20100709
  Transmission Date: 20110219
  Serious: No
  Sender: FDA-Public Use
  Company Number: US-ASTRAZENECA-2010SE32115

PATIENT
  Age: 46 Year
  Sex: Female
  Weight: 54.4 kg

DRUGS (7)
  1. SEROQUEL XR [Suspect]
     Indication: NERVOUSNESS
     Route: 048
     Dates: start: 20100520, end: 20100704
  2. SEROQUEL XR [Suspect]
     Route: 048
     Dates: start: 20100707
  3. SEROQUEL XR [Suspect]
     Route: 048
  4. BENICAR [Concomitant]
  5. PROZAC [Concomitant]
  6. MUSCLE RELAXERS [Concomitant]
  7. DARVON [Concomitant]

REACTIONS (4)
  - DRUG DOSE OMISSION [None]
  - HEADACHE [None]
  - INTENTIONAL DRUG MISUSE [None]
  - SOMNOLENCE [None]
